FAERS Safety Report 18739282 (Version 1)
Quarter: 2021Q1

REPORT INFORMATION
  Report Type: Spontaneous
  Country: JP (occurrence: JP)
  Receive Date: 20210114
  Receipt Date: 20210114
  Transmission Date: 20210419
  Serious: Yes (Other)
  Sender: FDA-Public Use
  Company Number: JP-ROCHE-2749527

PATIENT
  Age: 5 Decade
  Sex: Female

DRUGS (2)
  1. ACTEMRA [Suspect]
     Active Substance: TOCILIZUMAB
     Indication: TAKAYASU^S ARTERITIS
     Dosage: HYPODERMIC
     Route: 058
     Dates: start: 201912, end: 202101
  2. EFIENT [Suspect]
     Active Substance: PRASUGREL HYDROCHLORIDE
     Indication: TAKAYASU^S ARTERITIS
     Dosage: DOSAGE WAS UNCERTAIN.
     Route: 048

REACTIONS (3)
  - Off label use [Unknown]
  - Metrorrhagia [Unknown]
  - Intentional product use issue [Unknown]

NARRATIVE: CASE EVENT DATE: 201912
